FAERS Safety Report 5319695-3 (Version None)
Quarter: 2007Q2

REPORT INFORMATION
  Report Type: 
  Country: None (occurrence: None)
  Receive Date: 20070502
  Receipt Date: 20070419
  Transmission Date: 20071010
  Serious: Yes (Other)
  Sender: FDA-Public Use
  Company Number: 2006EU002751

PATIENT
  Age: 58 Year
  Sex: Male
  Weight: 100 kg

DRUGS (3)
  1. PROGRAF [Suspect]
     Indication: BALANITIS
     Dosage: 0.03%, BID, TOPICAL
     Route: 061
     Dates: start: 20040304, end: 20050218
  2. LEVOTHYROXINE SODIUM [Concomitant]
  3. LOSARTAN POTASSIUM W/HYDROCHLOROTHIAZIDE (LOSARTAN POTASSIUM) [Concomitant]

REACTIONS (1)
  - PENIS CARCINOMA [None]
